FAERS Safety Report 9449281 (Version 1)
Quarter: 2013Q3

REPORT INFORMATION
  Report Type: Spontaneous
  Country: US (occurrence: US)
  Receive Date: 20130808
  Receipt Date: 20130808
  Transmission Date: 20140515
  Serious: Yes (Other)
  Sender: FDA-Public Use
  Company Number: CHPA2013US012527

PATIENT
  Age: 74 Year
  Sex: Female

DRUGS (2)
  1. EXCEDRIN PM [Suspect]
     Indication: HEADACHE
     Dosage: UNK, UNK
     Route: 048
     Dates: end: 201307
  2. EXCEDRIN PM [Suspect]
     Indication: INSOMNIA

REACTIONS (3)
  - Bladder disorder [Not Recovered/Not Resolved]
  - Insomnia [Not Recovered/Not Resolved]
  - Off label use [Unknown]
